FAERS Safety Report 10041235 (Version 1)
Quarter: 2014Q1

REPORT INFORMATION
  Report Type: Spontaneous
  Country: ES (occurrence: ES)
  Receive Date: 20140327
  Receipt Date: 20140327
  Transmission Date: 20141002
  Serious: Yes (Life-Threatening)
  Sender: FDA-Public Use
  Company Number: ES-VERTEX PHARMACEUTICALS INC-2014-001479

PATIENT
  Age: 62 Year
  Sex: Female

DRUGS (3)
  1. INCIVO [Suspect]
     Indication: HEPATITIS C
     Dosage: 6 DF, QD
     Dates: start: 20130215, end: 20130409
  2. RIBAVIRIN [Suspect]
     Indication: HEPATITIS C
     Dosage: 6 DF, QD
     Dates: start: 20130215, end: 20130409
  3. PEGASYS [Suspect]
     Indication: HEPATITIS C
     Dosage: 180 ?G, QW
     Dates: start: 20130215, end: 20130403

REACTIONS (3)
  - Cellulitis gangrenous [Unknown]
  - Sepsis [Unknown]
  - Pancytopenia [Recovered/Resolved]
